FAERS Safety Report 20976019 (Version 1)
Quarter: 2022Q2

REPORT INFORMATION
  Report Type: Spontaneous
  Country: CN (occurrence: None)
  Receive Date: 20220617
  Receipt Date: 20220617
  Transmission Date: 20220721
  Serious: Yes (Hospitalization, Other)
  Sender: FDA-Public Use
  Company Number: 2022A203711

PATIENT
  Age: 70 Year
  Sex: Female
  Weight: 20 kg

DRUGS (1)
  1. IRESSA [Suspect]
     Active Substance: GEFITINIB
     Indication: Lung neoplasm malignant
     Route: 048
     Dates: start: 2017

REACTIONS (7)
  - Drug resistance [Unknown]
  - Neoplasm malignant [Unknown]
  - Rash [Unknown]
  - Pruritus [Unknown]
  - Asthma [Unknown]
  - Coronary artery disease [Unknown]
  - Bedridden [Unknown]

NARRATIVE: CASE EVENT DATE: 20180601
